FAERS Safety Report 9994696 (Version 1)
Quarter: 2014Q1

REPORT INFORMATION
  Report Type: Other
  Country: US (occurrence: US)
  Receive Date: 20140311
  Receipt Date: 20140311
  Transmission Date: 20141002
  Serious: Yes (Other)
  Sender: FDA-Public Use
  Company Number: US-SHIRE-US201400173

PATIENT
  Sex: 0

DRUGS (5)
  1. VYVANSE [Suspect]
     Indication: ATTENTION DEFICIT/HYPERACTIVITY DISORDER
     Dosage: 50 MG, 1X/DAY:QD
     Route: 048
     Dates: start: 20140219, end: 20140220
  2. INTUNIV [Suspect]
     Indication: ATTENTION DEFICIT/HYPERACTIVITY DISORDER
     Dosage: 4 MG, 1X/DAY:QD (AT BEDTIME)
     Route: 048
  3. ZOLOFT [Concomitant]
     Indication: ANXIETY
     Dosage: UNK (50 MG TABLET, 1.5 TAB IN AM)
     Route: 048
  4. LAMICTAL [Concomitant]
     Indication: AFFECTIVE DISORDER
     Dosage: 25 MG, 1X/DAY:QD
     Route: 048
  5. LATUDA [Concomitant]
     Indication: AFFECTIVE DISORDER
     Dosage: UNK (120MG TABLET, HALF TABLET, AT BEDTIME)
     Route: 048
     Dates: start: 201312

REACTIONS (2)
  - Cyanosis [Recovering/Resolving]
  - Conduct disorder [Unknown]
